FAERS Safety Report 9439200 (Version 2)
Quarter: 2013Q4

REPORT INFORMATION
  Report Type: Spontaneous
  Country: US (occurrence: US)
  Receive Date: 20130803
  Receipt Date: 20131022
  Transmission Date: 20140711
  Serious: Yes (Hospitalization)
  Sender: FDA-Public Use
  Company Number: US-B.I. PHARMACEUTICALS,INC./RIDGEFIELD-2013-BI-22630BP

PATIENT
  Age: 70 Year
  Sex: Male
  Weight: 107.5 kg

DRUGS (22)
  1. PRADAXA [Suspect]
     Indication: CEREBROVASCULAR ACCIDENT PROPHYLAXIS
     Dosage: 300 MG
     Route: 048
     Dates: start: 20121022
  2. PRADAXA [Suspect]
     Indication: ATRIAL FIBRILLATION
  3. PRADAXA [Suspect]
     Indication: CEREBROVASCULAR ACCIDENT
  4. HYDROCHLOROTHIAZIDE [Concomitant]
     Indication: FLUID RETENTION
     Dosage: 25 MG
     Route: 048
     Dates: start: 2008
  5. HYDROCHLOROTHIAZIDE [Concomitant]
     Indication: HYPERTENSION
  6. METFORMIN [Concomitant]
     Indication: DIABETES MELLITUS
     Dosage: 2000 MG
     Route: 048
     Dates: start: 2011
  7. METFORMIN [Concomitant]
     Indication: TYPE 2 DIABETES MELLITUS
     Dosage: DAILY DOSE: 1 TABLET
     Route: 048
  8. KLOR-CON [Concomitant]
     Indication: HYPOKALAEMIA
     Dates: start: 2008
  9. RAMIPRIL [Concomitant]
     Indication: ARRHYTHMIA
     Dosage: 5 MG
     Route: 048
     Dates: start: 2005
  10. RAMIPRIL [Concomitant]
     Indication: HYPERTENSION
  11. ALLOPURINOL [Concomitant]
     Indication: GOUT
     Dosage: 300 MG
     Route: 048
     Dates: start: 2011
  12. ALLOPURINOL [Concomitant]
     Dosage: 100 MG
     Route: 048
  13. SIMVASTATIN [Concomitant]
     Indication: BLOOD CHOLESTEROL INCREASED
     Dosage: 40 MG
     Route: 048
     Dates: start: 2005
  14. SIMVASTATIN [Concomitant]
     Indication: HYPERLIPIDAEMIA
  15. TRAMADOL [Concomitant]
     Indication: RHEUMATOID ARTHRITIS
     Dosage: 150 MG
     Route: 048
     Dates: start: 2008
  16. METOPROLOL [Concomitant]
     Indication: ARRHYTHMIA
     Dosage: 25 MG
     Route: 048
     Dates: start: 2005
  17. METOPROLOL [Concomitant]
     Dosage: 50 MG
     Route: 048
  18. LOVENOX [Concomitant]
     Route: 058
  19. AGGRENOX [Concomitant]
  20. NITRO-DUR [Concomitant]
     Dosage: FORMULATION: PATCH
  21. LYRICA [Concomitant]
  22. NASONEX [Concomitant]
     Dosage: 2 ANZ

REACTIONS (4)
  - Cerebrovascular accident [Recovered/Resolved]
  - Transient ischaemic attack [Recovered/Resolved]
  - Gastrooesophageal reflux disease [Recovered/Resolved]
  - Dysphagia [Recovered/Resolved]
